FAERS Safety Report 9843275 (Version 1)
Quarter: 2014Q1

REPORT INFORMATION
  Report Type: Spontaneous
  Country: IT (occurrence: IT)
  Receive Date: 20140124
  Receipt Date: 20140124
  Transmission Date: 20141002
  Serious: Yes (Hospitalization, Other)
  Sender: FDA-Public Use
  Company Number: IT-ASTRAZENECA-2014SE03964

PATIENT
  Age: 15598 Day
  Sex: Male

DRUGS (2)
  1. SEROQUEL [Suspect]
     Indication: BIPOLAR DISORDER
     Route: 048
     Dates: start: 20140101, end: 20140101
  2. ALCOVER [Suspect]
     Indication: ALCOHOL DETOXIFICATION
     Dosage: 17,5% ORAL SOLUTION, 40 ML, FOUR BOTTLES
     Route: 048
     Dates: start: 20140101, end: 20140101

REACTIONS (3)
  - Overdose [Unknown]
  - Bradycardia [Recovered/Resolved]
  - Coma [Recovered/Resolved]
